FAERS Safety Report 9025547 (Version 1)
Quarter: 2013Q1

REPORT INFORMATION
  Report Type: Spontaneous
  Country: US (occurrence: US)
  Receive Date: 20130122
  Receipt Date: 20130122
  Transmission Date: 20140127
  Serious: No
  Sender: FDA-Public Use
  Company Number: US-BAYER-2013-004236

PATIENT
  Sex: Female

DRUGS (1)
  1. BETASERON [Suspect]
     Dosage: UNK UNK, QOD
     Dates: start: 2012

REACTIONS (1)
  - Rash macular [None]
